FAERS Safety Report 10518656 (Version 1)
Quarter: 2014Q4

REPORT INFORMATION
  Report Type: Report from Study
  Country: US (occurrence: US)
  Receive Date: 20141015
  Receipt Date: 20141015
  Transmission Date: 20150528
  Serious: Yes (Disabling)
  Sender: FDA-Public Use
  Company Number: US-LEO PHARMA-227415

PATIENT
  Age: 69 Year
  Sex: Male

DRUGS (1)
  1. PICATO [Suspect]
     Active Substance: INGENOL MEBUTATE
     Indication: PRECANCEROUS SKIN LESION
     Route: 061
     Dates: start: 201404, end: 201404

REACTIONS (8)
  - Application site haemorrhage [Recovered/Resolved]
  - Application site pustules [Recovered/Resolved]
  - Application site discharge [Recovered/Resolved]
  - Wrong technique in drug usage process [Unknown]
  - Application site pain [Recovered/Resolved]
  - Physical disability [Recovered/Resolved]
  - Dizziness [Recovered/Resolved]
  - Incorrect drug administration duration [Unknown]

NARRATIVE: CASE EVENT DATE: 201404
